FAERS Safety Report 7963597-0 (Version None)
Quarter: 2011Q4

REPORT INFORMATION
  Report Type: 
  Country: None (occurrence: None)
  Receive Date: 20111208
  Receipt Date: 20111128
  Transmission Date: 20120403
  Serious: Yes (Hospitalization)
  Sender: FDA-Public Use
  Company Number: US-BAYER-2011-053861

PATIENT
  Age: 24 Year
  Sex: Female
  Weight: 66.667 kg

DRUGS (6)
  1. YAZ [Suspect]
     Indication: CONTRACEPTION
     Dosage: UNK
     Dates: start: 20081124, end: 20100701
  2. XOPENEX [Concomitant]
     Dosage: 2 PUFFS, EVERY 4 HRS OR PRN
     Route: 045
  3. REGLAN [Concomitant]
     Indication: NAUSEA
     Dosage: 10 MG, EVERY 6 HOURS OR PRN
     Route: 048
  4. YAZ [Suspect]
     Indication: ACNE
  5. MATERNAL 90 [Concomitant]
     Dosage: ONE ORAL TAB, QD
  6. OXYCODONE HCL AND ACETAMINOPHEN [Concomitant]
     Indication: PAIN MANAGEMENT
     Dosage: 7.5MG/325MG, PRN
     Route: 048
     Dates: start: 20081001, end: 20110101

REACTIONS (2)
  - CHOLECYSTITIS ACUTE [None]
  - GALLBLADDER DISORDER [None]
